FAERS Safety Report 25889315 (Version 2)
Quarter: 2025Q4

REPORT INFORMATION
  Report Type: Report from Study
  Country: US (occurrence: US)
  Receive Date: 20251007
  Receipt Date: 20251007
  Transmission Date: 20260117
  Serious: Yes (Death, Other)
  Sender: ALEXION PHARMACEUTICALS
  Company Number: US-AstraZeneca-CH-00960271A

PATIENT
  Sex: Female
  Weight: 63.956 kg

DRUGS (1)
  1. CALQUENCE [Suspect]
     Active Substance: ACALABRUTINIB
     Dates: start: 20250902

REACTIONS (5)
  - Loss of consciousness [Fatal]
  - Postural orthostatic tachycardia syndrome [Fatal]
  - Vomiting [Unknown]
  - Spinal fracture [Unknown]
  - Ligament sprain [Unknown]
